FAERS Safety Report 10766352 (Version 5)
Quarter: 2015Q4

REPORT INFORMATION
  Report Type: Report from Study
  Country: JP (occurrence: JP)
  Receive Date: 20150205
  Receipt Date: 20151110
  Transmission Date: 20160304
  Serious: Yes (Death, Other)
  Sender: FDA-Public Use
  Company Number: JP-PFIZER INC-2014331168

PATIENT
  Age: 83 Year
  Sex: Male
  Weight: 63.5 kg

DRUGS (29)
  1. XALKORI [Suspect]
     Active Substance: CRIZOTINIB
     Dosage: 200 MG, 2X/DAY
     Route: 048
     Dates: start: 20131217, end: 20131226
  2. BETANIS [Concomitant]
     Active Substance: MIRABEGRON
     Dosage: 50 MG, 1X/DAY
     Route: 048
     Dates: end: 20140128
  3. EQUA [Concomitant]
     Active Substance: VILDAGLIPTIN
     Dosage: 50 MG, 2X/DAY
     Route: 048
     Dates: end: 20140128
  4. CHOREI-TO [Concomitant]
     Dosage: 2.5 G, 3X/DAY
     Route: 048
     Dates: end: 20140128
  5. NOVAMIN [Concomitant]
     Active Substance: PROCHLORPERAZINE MALEATE
     Dosage: 5 MG, 3X/DAY
     Dates: start: 20131203, end: 20131209
  6. MICARDIS [Concomitant]
     Active Substance: TELMISARTAN
     Dosage: 20 MG, DAILY
     Route: 048
     Dates: start: 20131210, end: 20140128
  7. EVIPROSTAT [Concomitant]
     Active Substance: CHIMAPHILA UMBELLATA\MANGANESE CHLORIDE\POPULUS TREMULOIDES\SODIUM TAUROCHOLATE
     Dosage: UNK, 3X/DAY
     Route: 048
     Dates: end: 20140128
  8. NOVAMIN [Concomitant]
     Active Substance: PROCHLORPERAZINE MALEATE
     Dosage: 5 MG, 3X/DAY
     Dates: start: 20131217, end: 20131226
  9. NEXIUM [Concomitant]
     Active Substance: ESOMEPRAZOLE MAGNESIUM
     Dosage: 10 MG, 1X/DAY
     Route: 048
  10. MICARDIS [Concomitant]
     Active Substance: TELMISARTAN
     Dosage: 40 MG, 1X/DAY
     Route: 048
     Dates: start: 20131209, end: 20131209
  11. LAMISIL [Concomitant]
     Active Substance: TERBINAFINE HYDROCHLORIDE
     Dosage: UNK
     Dates: end: 20140128
  12. TAMSULOSIN HYDROCHLORIDE. [Concomitant]
     Active Substance: TAMSULOSIN HYDROCHLORIDE
     Dosage: UNK
     Dates: end: 20140128
  13. NOVAMIN [Concomitant]
     Active Substance: PROCHLORPERAZINE MALEATE
     Dosage: 5 MG, 3X/DAY
     Route: 048
     Dates: start: 20131120, end: 20131123
  14. XALKORI [Suspect]
     Active Substance: CRIZOTINIB
     Dosage: 200 MG, 2X/DAY
     Route: 048
     Dates: start: 20140108, end: 20140124
  15. COUGHCODE [Concomitant]
     Active Substance: BROMISOVAL\DIHYDROCODEINE PHOSPHATE\DYPHYLLINE\METHYLEPHEDRINE HYDROCHLORIDE, (+/-)-
     Dosage: 3.3 ML, 3X/DAY
     Route: 048
     Dates: end: 20140128
  16. CRAVIT [Concomitant]
     Active Substance: LEVOFLOXACIN
     Dosage: 500 MG, UNK
  17. ALOSITOL [Concomitant]
     Active Substance: ALLOPURINOL
     Dosage: 100 MG, 1X/DAY
     Route: 048
     Dates: end: 20140128
  18. PRAZAXA [Concomitant]
     Active Substance: DABIGATRAN ETEXILATE MESYLATE
     Dosage: 110 MG, 2X/DAY
  19. LANTUS [Concomitant]
     Active Substance: INSULIN GLARGINE
     Dosage: 2 DF, 1X/DAY
     Route: 041
  20. FAMOTIDINE. [Concomitant]
     Active Substance: FAMOTIDINE
     Dosage: UNK
     Dates: end: 20140128
  21. XALKORI [Suspect]
     Active Substance: CRIZOTINIB
     Indication: NON-SMALL CELL LUNG CANCER
     Dosage: 250 MG, 2X/DAY
     Route: 048
     Dates: start: 20131120, end: 20131122
  22. MAGMITT [Concomitant]
     Active Substance: MAGNESIUM OXIDE
     Dosage: 500 MG, 2X/DAY
     Route: 048
     Dates: end: 20140129
  23. NOVAMIN [Concomitant]
     Active Substance: PROCHLORPERAZINE MALEATE
     Dosage: 5 MG, 3X/DAY
     Dates: start: 20140108, end: 20140124
  24. KARY UNI [Concomitant]
     Active Substance: PIRENOXINE
     Dosage: 1 GTT, 3X/DAY
     Route: 047
  25. ZOSYN [Concomitant]
     Active Substance: PIPERACILLIN SODIUM\TAZOBACTAM SODIUM
     Dosage: 45 G, UNK
  26. XALKORI [Suspect]
     Active Substance: CRIZOTINIB
     Dosage: 200 MG, 2X/DAY
     Route: 048
     Dates: start: 20131203, end: 20131209
  27. VESICARE OD [Concomitant]
     Dosage: 5 MG, 2X/DAY
     Route: 048
     Dates: end: 20140128
  28. AMLODIPINE [Concomitant]
     Active Substance: AMLODIPINE BESYLATE
     Dosage: 5 MG, 1X/DAY
     Route: 048
     Dates: end: 20140128
  29. FUROSEMIDE. [Concomitant]
     Active Substance: FUROSEMIDE
     Dosage: 40 MG, 1X/DAY
     Route: 048
     Dates: end: 20140129

REACTIONS (4)
  - Hypoxia [Not Recovered/Not Resolved]
  - Disease progression [Fatal]
  - Respiratory failure [Not Recovered/Not Resolved]
  - Non-small cell lung cancer [Fatal]

NARRATIVE: CASE EVENT DATE: 20131122
